FAERS Safety Report 14394335 (Version 1)
Quarter: 2018Q1

REPORT INFORMATION
  Report Type: Spontaneous
  Country: US (occurrence: US)
  Receive Date: 20180116
  Receipt Date: 20180116
  Transmission Date: 20180509
  Serious: No
  Sender: FDA-Public Use
  Company Number: US-LEO PHARMA-306925

PATIENT
  Age: 40 Year
  Sex: Female

DRUGS (1)
  1. PICATO [Suspect]
     Active Substance: INGENOL MEBUTATE
     Indication: SUNBURN
     Route: 061
     Dates: start: 20180107, end: 20180107

REACTIONS (10)
  - Application site swelling [Not Recovered/Not Resolved]
  - Eye swelling [Not Recovered/Not Resolved]
  - Incorrect drug administration duration [Unknown]
  - Application site erythema [Not Recovered/Not Resolved]
  - Application site pain [Not Recovered/Not Resolved]
  - Application site discomfort [Not Recovered/Not Resolved]
  - Drug administration error [Unknown]
  - Application site dryness [Not Recovered/Not Resolved]
  - Application site pain [Recovered/Resolved]
  - Application site warmth [Not Recovered/Not Resolved]

NARRATIVE: CASE EVENT DATE: 20180107
